FAERS Safety Report 19070432 (Version 1)
Quarter: 2021Q1

REPORT INFORMATION
  Report Type: Report from Study
  Country: None (occurrence: CA)
  Receive Date: 20210329
  Receipt Date: 20210329
  Transmission Date: 20210420
  Serious: Yes (Other)
  Sender: FDA-Public Use
  Company Number: CA-ABBVIE-21K-028-3772531-00

PATIENT
  Sex: Female

DRUGS (2)
  1. LOMOTIL [Suspect]
     Active Substance: ATROPINE SULFATE\DIPHENOXYLATE HYDROCHLORIDE
     Indication: DIARRHOEA
     Route: 065
  2. HUMIRA [Suspect]
     Active Substance: ADALIMUMAB
     Indication: CROHN^S DISEASE
     Route: 058
     Dates: start: 20190125

REACTIONS (22)
  - Hernia [Unknown]
  - Adverse food reaction [Unknown]
  - Abdominal adhesions [Not Recovered/Not Resolved]
  - Nausea [Unknown]
  - Stress [Unknown]
  - Injection site bruising [Unknown]
  - Pain [Not Recovered/Not Resolved]
  - Bedridden [Unknown]
  - Anaemia [Unknown]
  - Influenza like illness [Not Recovered/Not Resolved]
  - Intestinal obstruction [Unknown]
  - Abdominal pain [Unknown]
  - Malaise [Not Recovered/Not Resolved]
  - Faecal calprotectin abnormal [Not Recovered/Not Resolved]
  - Abdominal pain [Not Recovered/Not Resolved]
  - Malnutrition [Not Recovered/Not Resolved]
  - Skin induration [Unknown]
  - Injection site pain [Unknown]
  - Decreased appetite [Not Recovered/Not Resolved]
  - Constipation [Not Recovered/Not Resolved]
  - Diarrhoea [Not Recovered/Not Resolved]
  - Abdominal mass [Not Recovered/Not Resolved]

NARRATIVE: CASE EVENT DATE: 2020
